FAERS Safety Report 13078054 (Version 2)
Quarter: 2017Q1

REPORT INFORMATION
  Report Type: Spontaneous
  Country: FR (occurrence: FR)
  Receive Date: 20170102
  Receipt Date: 20170109
  Transmission Date: 20170428
  Serious: Yes (Other)
  Sender: FDA-Public Use
  Company Number: FR-ORION CORPORATION ORION PHARMA-ENTC2016-0764

PATIENT
  Age: 45 Year
  Sex: Female

DRUGS (6)
  1. STALEVO [Suspect]
     Active Substance: CARBIDOPA\ENTACAPONE\LEVODOPA
     Dosage: STRENGTH: 50/12.5/200 MG
     Route: 065
  2. MODOPAR LP [Concomitant]
     Active Substance: BENSERAZIDE HYDROCHLORIDE\LEVODOPA
     Route: 065
  3. AZILECT [Concomitant]
     Active Substance: RASAGILINE MESYLATE
     Route: 065
  4. SIFROL [Concomitant]
     Active Substance: PRAMIPEXOLE
     Route: 065
  5. LAROXYL [Concomitant]
     Active Substance: AMITRIPTYLINE
     Route: 065
  6. STALEVO [Suspect]
     Active Substance: CARBIDOPA\ENTACAPONE\LEVODOPA
     Indication: PARKINSON^S DISEASE
     Dosage: STRENGTH: 50/12.5/200 MG
     Route: 065
     Dates: start: 201610

REACTIONS (7)
  - Drug ineffective [Unknown]
  - Fatigue [Recovered/Resolved]
  - Product quality issue [Unknown]
  - Chromaturia [Recovered/Resolved]
  - Decreased appetite [Recovered/Resolved]
  - Nausea [Recovered/Resolved]
  - Parkinson^s disease [Unknown]

NARRATIVE: CASE EVENT DATE: 201610
